FAERS Safety Report 4904352-5 (Version None)
Quarter: 2006Q1

REPORT INFORMATION
  Report Type: 
  Country: None (occurrence: None)
  Receive Date: 20060208
  Receipt Date: 20050825
  Transmission Date: 20060701
  Serious: No
  Sender: FDA-Public Use
  Company Number: US-GLAXOSMITHKLINE-A0571837A

PATIENT
  Age: 57 Year
  Sex: Female

DRUGS (4)
  1. PAXIL [Suspect]
     Dosage: 30MG PER DAY
     Route: 048
  2. FLONASE [Concomitant]
  3. SINGULAIR [Concomitant]
  4. ASTELIN [Concomitant]

REACTIONS (2)
  - ADVERSE EVENT [None]
  - DIZZINESS [None]
